FAERS Safety Report 9784338 (Version 1)
Quarter: 2013Q4

REPORT INFORMATION
  Report Type: Spontaneous
  Country: US (occurrence: US)
  Receive Date: 20131226
  Receipt Date: 20131226
  Transmission Date: 20140711
  Serious: No
  Sender: FDA-Public Use
  Company Number: US-BIOGENIDEC-2013BI123194

PATIENT
  Age: 56 Year
  Sex: Female

DRUGS (5)
  1. TECFIDERA [Suspect]
     Indication: MULTIPLE SCLEROSIS
  2. COPAXONE [Concomitant]
  3. AVONEX [Concomitant]
  4. TYSABRI [Concomitant]
  5. AMPYRA [Concomitant]

REACTIONS (1)
  - Weight increased [Unknown]
